FAERS Safety Report 4837277-4 (Version None)
Quarter: 2005Q4

REPORT INFORMATION
  Report Type: 
  Country: None (occurrence: None)
  Receive Date: 20051128
  Receipt Date: 20051116
  Transmission Date: 20060501
  Serious: Yes (Other)
  Sender: FDA-Public Use
  Company Number: 2005UW17476

PATIENT
  Age: 46 Year
  Sex: Female
  Weight: 64.4 kg

DRUGS (4)
  1. DIPRIVAN [Suspect]
     Indication: SURGERY
     Route: 042
     Dates: start: 20051103
  2. VERSED [Suspect]
     Indication: SURGERY
     Dates: start: 20051103
  3. FENTANYL [Suspect]
     Indication: SURGERY
     Dates: start: 20051103
  4. INDERAL LA [Concomitant]

REACTIONS (5)
  - BLOOD AMYLASE INCREASED [None]
  - HEPATIC STEATOSIS [None]
  - LIPASE INCREASED [None]
  - NAUSEA [None]
  - VOMITING [None]
